FAERS Safety Report 7435440-X (Version None)
Quarter: 2011Q2

REPORT INFORMATION
  Report Type: 
  Country: None (occurrence: None)
  Receive Date: 20110425
  Receipt Date: 20110420
  Transmission Date: 20111010
  Serious: Yes (Disabling)
  Sender: FDA-Public Use
  Company Number: US-MERCK-1104USA03001

PATIENT
  Age: 69 Year
  Sex: Male

DRUGS (5)
  1. PROPECIA [Suspect]
     Route: 048
     Dates: start: 20090701
  2. PROPECIA [Suspect]
     Route: 048
     Dates: start: 20081015
  3. PROPECIA [Suspect]
     Route: 048
     Dates: start: 20100108
  4. PROPECIA [Suspect]
     Route: 048
     Dates: start: 20090411
  5. PROPECIA [Suspect]
     Route: 048
     Dates: start: 20090818

REACTIONS (1)
  - AMYOTROPHIC LATERAL SCLEROSIS [None]
